FAERS Safety Report 5815284-2 (Version None)
Quarter: 2008Q3

REPORT INFORMATION
  Report Type: 
  Country: None (occurrence: None)
  Receive Date: 20080718
  Receipt Date: 20070605
  Transmission Date: 20090109
  Serious: Yes (Life-Threatening, Hospitalization, Other)
  Sender: FDA-Public Use
  Company Number: CA-PFIZER INC-2006136607

PATIENT
  Sex: Male
  Weight: 89 kg

DRUGS (24)
  1. BLINDED UK-427,857 [Suspect]
     Indication: HIV TEST POSITIVE
     Route: 048
  2. LAMIVUDINE [Concomitant]
     Route: 048
     Dates: start: 19980401
  3. TENOFOVIR [Concomitant]
     Dosage: DAILY DOSE:300MG
     Route: 048
     Dates: start: 20020601
  4. FUZEON [Concomitant]
     Route: 058
     Dates: start: 20030630
  5. RITONAVIR [Concomitant]
     Route: 048
     Dates: start: 20051011
  6. TIPRANAVIR [Concomitant]
     Route: 048
     Dates: start: 20051011
  7. MEPRON [Concomitant]
     Route: 048
     Dates: start: 20000101
  8. AZITHROMYCIN [Concomitant]
     Route: 048
     Dates: start: 19960820, end: 20060913
  9. ALTACE [Concomitant]
     Route: 048
     Dates: start: 20010401
  10. LIPIDIL [Concomitant]
     Route: 048
     Dates: start: 20010405
  11. PARIET [Concomitant]
     Route: 048
     Dates: start: 20050601
  12. VIAGRA [Concomitant]
     Route: 048
  13. ACETYLSALICYLIC ACID SRT [Concomitant]
     Route: 048
     Dates: start: 20051012
  14. EFFEXOR [Concomitant]
     Route: 048
     Dates: start: 20060630
  15. HYDROCHLOROTHIAZIDE [Concomitant]
     Route: 048
     Dates: start: 20050617
  16. ALLOPURINOL [Concomitant]
     Route: 048
     Dates: start: 20060617
  17. SEPTRA DS [Concomitant]
     Route: 048
  18. OXYCONTIN [Concomitant]
     Route: 048
  19. IMOVANE [Concomitant]
     Route: 048
  20. CYCLOPHOSPHAMIDE [Concomitant]
     Route: 042
  21. DOXORUBICIN HCL [Concomitant]
     Route: 042
  22. VINCRISTINE [Concomitant]
     Route: 042
  23. PREDNISONE TAB [Concomitant]
     Route: 048
  24. METHOTREXATE [Concomitant]
     Route: 042

REACTIONS (6)
  - B-CELL LYMPHOMA [None]
  - FEBRILE NEUTROPENIA [None]
  - INTERVERTEBRAL DISC DEGENERATION [None]
  - OESOPHAGEAL CANDIDIASIS [None]
  - OSTEOPENIA [None]
  - SPINAL COMPRESSION FRACTURE [None]
